FAERS Safety Report 14913722 (Version 2)
Quarter: 2018Q2

REPORT INFORMATION
  Report Type: Spontaneous
  Country: CY (occurrence: CY)
  Receive Date: 20180518
  Receipt Date: 20180531
  Transmission Date: 20180711
  Serious: Yes (Death, Other)
  Sender: FDA-Public Use
  Company Number: CY-GLAXOSMITHKLINE-CY2018GSK088401

PATIENT
  Age: 82 Year
  Sex: Female

DRUGS (2)
  1. MEDOVIR [Concomitant]
     Indication: HERPES ZOSTER
     Dosage: UNK
     Dates: start: 2018
  2. VALTREX [Suspect]
     Active Substance: VALACYCLOVIR HYDROCHLORIDE
     Indication: HERPES ZOSTER
     Dosage: 2 DF, TID
     Dates: start: 2018

REACTIONS (5)
  - Acute kidney injury [Fatal]
  - Agitation [Unknown]
  - Dysarthria [Unknown]
  - Confusional state [Unknown]
  - Transient ischaemic attack [Unknown]
